FAERS Safety Report 8138354-5 (Version None)
Quarter: 2012Q1

REPORT INFORMATION
  Report Type: 
  Country: None (occurrence: None)
  Receive Date: 20120213
  Receipt Date: 20120130
  Transmission Date: 20120608
  Serious: Yes (Other)
  Sender: FDA-Public Use
  Company Number: DSA_54918_2012

PATIENT
  Age: 66 Year
  Sex: Female

DRUGS (18)
  1. LEVOFLOXACIN [Concomitant]
  2. FUROSEMIDE [Concomitant]
  3. FRAXIPARIN /00889603/ [Concomitant]
  4. RISPERIDONE [Concomitant]
  5. DILTIAZEM HYDROCHLORIDE [Suspect]
     Indication: PRODUCT USED FOR UNKNOWN INDICATION
     Dosage: (30 MG, FREQUENCY UNKNOWN ORAL)
     Route: 048
  6. RANITIDINE [Concomitant]
  7. LORAZEPAM [Concomitant]
  8. DIGOXIN [Concomitant]
  9. SINTROM [Concomitant]
  10. AMPICILLIN [Concomitant]
  11. BROMAZEPAM [Concomitant]
  12. ACETAMINOPHEN [Concomitant]
  13. CLOPERASTINE [Concomitant]
  14. SPIRONOLACTONE [Concomitant]
  15. NISTATIN [Concomitant]
  16. MIRTAZAPINE [Concomitant]
  17. ACETYLCYSTEINE [Concomitant]
  18. VERAPAMIL [Concomitant]

REACTIONS (4)
  - RASH GENERALISED [None]
  - DERMATITIS [None]
  - RASH PUSTULAR [None]
  - RASH MACULO-PAPULAR [None]
